FAERS Safety Report 6300812-3 (Version None)
Quarter: 2009Q3

REPORT INFORMATION
  Report Type: 
  Country: None (occurrence: None)
  Receive Date: 20090807
  Receipt Date: 20090804
  Transmission Date: 20100115
  Serious: Yes (Other)
  Sender: FDA-Public Use
  Company Number: FR-BRISTOL-MYERS SQUIBB COMPANY-14728851

PATIENT
  Sex: Female

DRUGS (2)
  1. SUSTIVA [Suspect]
     Indication: HIV INFECTION
     Dates: start: 20030101
  2. TRUVADA [Suspect]
     Indication: HIV INFECTION
     Dates: start: 20030101

REACTIONS (1)
  - BREAST CANCER [None]
